FAERS Safety Report 7608759-7 (Version None)
Quarter: 2011Q3

REPORT INFORMATION
  Report Type: 
  Country: None (occurrence: None)
  Receive Date: 20110714
  Receipt Date: 20110714
  Transmission Date: 20111222
  Serious: No
  Sender: FDA-Public Use
  Company Number: None

PATIENT
  Age: 57 Year
  Sex: Female
  Weight: 49.895 kg

DRUGS (2)
  1. SAVELLA [Interacting]
     Route: 048
  2. SAVELLA [Suspect]
     Dosage: 12.5
     Route: 048

REACTIONS (16)
  - DISCOMFORT [None]
  - VERTIGO [None]
  - ANXIETY [None]
  - FEELING ABNORMAL [None]
  - EMOTIONAL DISORDER [None]
  - BALANCE DISORDER [None]
  - CHEST DISCOMFORT [None]
  - STRESS [None]
  - DELIRIUM [None]
  - FATIGUE [None]
  - ABNORMAL DREAMS [None]
  - DIZZINESS [None]
  - DYSPNOEA [None]
  - NAUSEA [None]
  - SENSATION OF PRESSURE [None]
  - ACTIVITIES OF DAILY LIVING IMPAIRED [None]
